FAERS Safety Report 4453361-1 (Version None)
Quarter: 2004Q3

REPORT INFORMATION
  Report Type: 
  Country: None (occurrence: None)
  Receive Date: 20040920
  Receipt Date: 20040906
  Transmission Date: 20050211
  Serious: Yes (Other)
  Sender: FDA-Public Use
  Company Number: JP-JNJFOC-20040701114

PATIENT
  Sex: Male

DRUGS (14)
  1. RISPERDAL [Suspect]
     Indication: SCHIZOPHRENIA
     Route: 049
  2. FLUNITRAZEPAM [Concomitant]
     Route: 049
  3. TEPRENONE [Concomitant]
     Route: 049
  4. LORAZEPAM [Concomitant]
     Indication: ANXIETY
     Route: 049
  5. LANSOPRAZOLE [Concomitant]
     Indication: REFLUX OESOPHAGITIS
     Route: 049
  6. LITHIUM CARBONATE [Concomitant]
     Route: 049
  7. LEVOMEPROMAZINE MALEATE [Concomitant]
     Route: 049
  8. BIPERIDEN HYDROCHLORIDE [Concomitant]
     Route: 049
  9. FK [Concomitant]
     Route: 049
  10. FK [Concomitant]
     Route: 049
  11. FK [Concomitant]
     Route: 049
  12. FK [Concomitant]
     Route: 049
  13. FK [Concomitant]
     Route: 049
  14. FK [Concomitant]
     Route: 049

REACTIONS (3)
  - BLOOD CREATINE PHOSPHOKINASE INCREASED [None]
  - EXCITABILITY [None]
  - HAEMOGLOBIN DECREASED [None]
